FAERS Safety Report 7349161-5 (Version None)
Quarter: 2011Q1

REPORT INFORMATION
  Report Type: 
  Country: None (occurrence: None)
  Receive Date: 20110314
  Receipt Date: 20110307
  Transmission Date: 20110831
  Serious: Yes (Death, Hospitalization)
  Sender: FDA-Public Use
  Company Number: US-SANOFI-AVENTIS-2011SA014591

PATIENT
  Age: 90 Year
  Sex: Female

DRUGS (3)
  1. ELITEK [Suspect]
     Route: 042
     Dates: start: 20110301, end: 20110301
  2. BENDAMUSTINE [Suspect]
     Route: 065
     Dates: start: 20110301, end: 20110301
  3. RITUXAN [Suspect]
     Route: 065
     Dates: start: 20110301, end: 20110301

REACTIONS (2)
  - UNRESPONSIVE TO STIMULI [None]
  - DEATH [None]
